FAERS Safety Report 25671317 (Version 1)
Quarter: 2025Q3

REPORT INFORMATION
  Report Type: Spontaneous
  Country: EU (occurrence: EU)
  Receive Date: 20250812
  Receipt Date: 20250812
  Transmission Date: 20251021
  Serious: Yes (Life-Threatening)
  Sender: NOVARTIS
  Company Number: None

PATIENT
  Age: 49 Year
  Sex: Male
  Weight: 67 kg

DRUGS (2)
  1. TAFINLAR [Suspect]
     Active Substance: DABRAFENIB MESYLATE
     Indication: Malignant melanoma
     Route: 048
     Dates: start: 20230508, end: 20240503
  2. MEKINIST [Suspect]
     Active Substance: TRAMETINIB DIMETHYL SULFOXIDE
     Indication: Malignant melanoma
     Route: 048
     Dates: start: 20230508, end: 20240503

REACTIONS (3)
  - Thrombocytopenia [Not Recovered/Not Resolved]
  - Mantle cell lymphoma [Unknown]
  - Splenomegaly [Unknown]

NARRATIVE: CASE EVENT DATE: 20240901
